FAERS Safety Report 5253767-7 (Version None)
Quarter: 2007Q1

REPORT INFORMATION
  Report Type: 
  Country: None (occurrence: None)
  Receive Date: 20070222
  Receipt Date: 20070216
  Transmission Date: 20070707
  Serious: No
  Sender: FDA-Public Use
  Company Number: 200711550

PATIENT
  Age: 14 Year
  Sex: Male
  Weight: 55 kg

DRUGS (5)
  1. HUMATE-P [Suspect]
     Indication: FACTOR VIII DEFICIENCY
     Dosage: IV
     Route: 042
     Dates: end: 20061221
  2. HUMATE-P [Suspect]
     Indication: SUTURE REMOVAL
     Dosage: IV
     Route: 042
     Dates: end: 20061221
  3. HUMATE-P [Suspect]
     Indication: FACTOR VIII DEFICIENCY
     Dosage: IV
     Route: 042
     Dates: start: 20061222
  4. HUMATE-P [Suspect]
     Indication: SUTURE REMOVAL
     Dosage: IV
     Route: 042
     Dates: start: 20061222
  5. HUMATE-P [Suspect]

REACTIONS (5)
  - DISCOMFORT [None]
  - HAEMORRHAGE [None]
  - JOINT SPRAIN [None]
  - JOINT SWELLING [None]
  - THROMBOSIS [None]
